FAERS Safety Report 9100890 (Version 1)
Quarter: 2013Q1

REPORT INFORMATION
  Report Type: Spontaneous
  Country: MX (occurrence: MX)
  Receive Date: 20130215
  Receipt Date: 20130215
  Transmission Date: 20140127
  Serious: Yes (Other)
  Sender: FDA-Public Use
  Company Number: PHHY2013MX014564

PATIENT
  Sex: Female

DRUGS (4)
  1. STALEVO [Suspect]
     Indication: PARKINSON^S DISEASE
     Dosage: 2 DF (200/150/37.5MG), DAILY
     Route: 048
     Dates: start: 20120606, end: 20121010
  2. BIPERIDEN [Concomitant]
     Dosage: 3 UNK, DAILY
     Dates: start: 2001
  3. LEVODOPA [Concomitant]
  4. CARBIDOPA [Concomitant]

REACTIONS (3)
  - Renal failure [Unknown]
  - Poisoning [Unknown]
  - Loss of control of legs [Unknown]
